FAERS Safety Report 4478481-7 (Version None)
Quarter: 2004Q4

REPORT INFORMATION
  Report Type: 
  Country: None (occurrence: None)
  Receive Date: 20041014
  Receipt Date: 20041005
  Transmission Date: 20050328
  Serious: No
  Sender: FDA-Public Use
  Company Number: 04H-163-0276308-00

PATIENT

DRUGS (2)
  1. LIDOCAINE HCL [Suspect]
     Indication: ARRHYTHMIA
     Dosage: INTRAVENOUS
     Route: 042
  2. LIDOCAINE HCL [Suspect]
     Indication: PROPHYLAXIS
     Dosage: INTRAVENOUS
     Route: 042

REACTIONS (2)
  - CARDIOTOXICITY [None]
  - COMA [None]
